FAERS Safety Report 22055770 (Version 1)
Quarter: 2023Q1

REPORT INFORMATION
  Report Type: Spontaneous
  Country: US (occurrence: US)
  Receive Date: 20230302
  Receipt Date: 20230302
  Transmission Date: 20230418
  Serious: No
  Sender: FDA-Public Use
  Company Number: US-BoehringerIngelheim-2023-BI-222363

PATIENT
  Age: 52 Year
  Sex: Female

DRUGS (2)
  1. COMBIVENT RESPIMAT [Suspect]
     Active Substance: ALBUTEROL SULFATE\IPRATROPIUM BROMIDE
     Indication: Chronic obstructive pulmonary disease
     Dates: start: 2021
  2. SPIRIVA RESPIMAT [Suspect]
     Active Substance: TIOTROPIUM BROMIDE
     Indication: Chronic obstructive pulmonary disease
     Dosage: 1 SPRAY IN THE MORNING, 1 SPRAY AT NIGHT
     Dates: start: 2021

REACTIONS (6)
  - Dyspnoea [Recovering/Resolving]
  - Intentional product use issue [Unknown]
  - Inappropriate schedule of product administration [Unknown]
  - Device leakage [Unknown]
  - Drug ineffective [Unknown]
  - Product delivery mechanism issue [Unknown]

NARRATIVE: CASE EVENT DATE: 20230225
